FAERS Safety Report 14894287 (Version 3)
Quarter: 2018Q4

REPORT INFORMATION
  Report Type: Report from Study
  Country: None (occurrence: PR)
  Receive Date: 20180515
  Receipt Date: 20181113
  Transmission Date: 20190204
  Serious: Yes (Hospitalization)
  Sender: FDA-Public Use
  Company Number: PR-ABBVIE-18K-131-2353862-00

PATIENT
  Age: 39 Year
  Sex: Female

DRUGS (15)
  1. ZANTAC [Concomitant]
     Active Substance: RANITIDINE HYDROCHLORIDE
     Indication: GASTRIC DISORDER
  2. DEPAKOTE ER [Concomitant]
     Active Substance: DIVALPROEX SODIUM
     Indication: PSYCHOTIC DISORDER
     Dosage: ER
  3. WELLBUTRIN SR [Concomitant]
     Active Substance: BUPROPION HYDROCHLORIDE
     Dosage: SR
  4. VITAMIN E [Concomitant]
     Active Substance: .ALPHA.-TOCOPHEROL
     Indication: VITAMIN SUPPLEMENTATION
  5. HUMIRA [Suspect]
     Active Substance: ADALIMUMAB
     Indication: PSORIATIC ARTHROPATHY
     Route: 058
     Dates: start: 20131001
  6. WELLBUTRIN SR [Concomitant]
     Active Substance: BUPROPION HYDROCHLORIDE
     Indication: ANXIETY
  7. FOLIC ACID. [Concomitant]
     Active Substance: FOLIC ACID
     Indication: VITAMIN SUPPLEMENTATION
  8. AMANTADINE. [Concomitant]
     Active Substance: AMANTADINE HYDROCHLORIDE
     Indication: ANXIETY
     Dosage: 50MG/5ML??12 CC
  9. GABAPENTINE [Concomitant]
     Active Substance: GABAPENTIN
     Indication: PAIN
  10. SIMVASTATIN. [Concomitant]
     Active Substance: SIMVASTATIN
     Indication: BLOOD CHOLESTEROL INCREASED
  11. FLEXERIL [Concomitant]
     Active Substance: CYCLOBENZAPRINE HYDROCHLORIDE
     Indication: PAIN
  12. NAPROXEN. [Concomitant]
     Active Substance: NAPROXEN
     Indication: PAIN
  13. LANTUS [Concomitant]
     Active Substance: INSULIN GLARGINE
     Indication: DIABETES MELLITUS
     Dosage: AT MORNING
  14. OMEGA 3 [Concomitant]
     Active Substance: OMEGA-3 FATTY ACIDS
     Indication: SUPPLEMENTATION THERAPY
  15. HUMALOG [Concomitant]
     Active Substance: INSULIN LISPRO
     Indication: DIABETES MELLITUS

REACTIONS (4)
  - Uterine leiomyoma [Not Recovered/Not Resolved]
  - Hypertension [Not Recovered/Not Resolved]
  - Seizure [Recovered/Resolved]
  - Seizure [Recovering/Resolving]

NARRATIVE: CASE EVENT DATE: 2013
